FAERS Safety Report 13359301 (Version 1)
Quarter: 2017Q1

REPORT INFORMATION
  Report Type: Spontaneous
  Country: US (occurrence: US)
  Receive Date: 20170322
  Receipt Date: 20170322
  Transmission Date: 20170429
  Serious: Yes (Other)
  Sender: FDA-Public Use
  Company Number: US-AMGEN-USASP2017019708

PATIENT
  Sex: Male
  Weight: 58.96 kg

DRUGS (1)
  1. PROLIA [Suspect]
     Active Substance: DENOSUMAB
     Indication: OSTEOPOROSIS
     Dosage: 60 MG, UNK
     Route: 058
     Dates: start: 201402, end: 201702

REACTIONS (2)
  - Psoriasis [Not Recovered/Not Resolved]
  - Lichen sclerosus [Not Recovered/Not Resolved]

NARRATIVE: CASE EVENT DATE: 2016
